FAERS Safety Report 18347138 (Version 1)
Quarter: 2020Q4

REPORT INFORMATION
  Report Type: Spontaneous
  Country: US (occurrence: US)
  Receive Date: 20201005
  Receipt Date: 20201005
  Transmission Date: 20210114
  Serious: No
  Sender: FDA-Public Use
  Company Number: US-BRISTOL-MYERS SQUIBB COMPANY-BMS-2020-081887

PATIENT
  Sex: Male

DRUGS (1)
  1. SPRYCEL [Suspect]
     Active Substance: DASATINIB
     Indication: ILL-DEFINED DISORDER
     Dosage: 80 MILLIGRAM, QD
     Route: 048
     Dates: start: 20200226

REACTIONS (2)
  - Palpitations [Unknown]
  - Intentional product use issue [Unknown]
